FAERS Safety Report 11797219 (Version 3)
Quarter: 2016Q1

REPORT INFORMATION
  Report Type: Spontaneous
  Country: US (occurrence: US)
  Receive Date: 20151203
  Receipt Date: 20160106
  Transmission Date: 20160525
  Serious: No
  Sender: FDA-Public Use
  Company Number: US-009507513-1511USA013113

PATIENT
  Age: 58 Year
  Sex: Female

DRUGS (1)
  1. BELSOMRA [Suspect]
     Active Substance: SUVOREXANT
     Indication: INSOMNIA
     Dosage: HALF TABLET FIRST, AND THE OTHER HALF LATER, TOTAL 1 DF (15 MG)
     Route: 048
     Dates: start: 20151120, end: 20151120

REACTIONS (7)
  - Wrong technique in product usage process [Unknown]
  - Nightmare [Recovered/Resolved]
  - Tachyphrenia [Recovered/Resolved]
  - Feeling abnormal [Recovered/Resolved]
  - Asthenia [Recovered/Resolved]
  - Drug ineffective [Unknown]
  - Headache [Recovered/Resolved]

NARRATIVE: CASE EVENT DATE: 20151120
